FAERS Safety Report 5712997-8 (Version None)
Quarter: 2008Q2

REPORT INFORMATION
  Report Type: 
  Country: None (occurrence: None)
  Receive Date: 20080422
  Receipt Date: 20080411
  Transmission Date: 20081010
  Serious: Yes (Hospitalization)
  Sender: FDA-Public Use
  Company Number: US-ROCHE-558328

PATIENT
  Sex: Male
  Weight: 83 kg

DRUGS (15)
  1. MYCOPHENOLATE MOFETIL [Suspect]
     Route: 048
     Dates: start: 20060427
  2. SIROLIMUS [Suspect]
     Route: 048
     Dates: start: 20060908
  3. PREDNISONE [Suspect]
     Route: 048
     Dates: start: 20060430
  4. MULTIVITAMIN NOS [Concomitant]
     Route: 048
     Dates: start: 20060502
  5. HYDROCHLOROTHIAZIDE [Concomitant]
     Dosage: TAKEN DAILY.
     Route: 048
     Dates: start: 20061020
  6. VYTORIN [Concomitant]
     Dosage: TAKEN EVERY DAY.
     Route: 048
     Dates: start: 20061005
  7. VYTORIN [Concomitant]
     Dosage: TAKEN EVERY DAY.
     Route: 048
     Dates: start: 20061005
  8. EQUATE [Concomitant]
     Dosage: DRUG REPORTED AS ^EQUATE 50^.
     Route: 048
     Dates: start: 20070215
  9. MAGNESIUM OXIDE [Concomitant]
     Route: 048
     Dates: start: 20060616
  10. PROCARDIA XL [Concomitant]
     Route: 048
     Dates: start: 20070412
  11. BACTRIM [Concomitant]
     Dosage: GIVEN ON MONDAY, WEDNESDAY AND FRIDAY.
     Route: 048
     Dates: start: 20061102
  12. BACTRIM [Concomitant]
     Dosage: GIVEN ON MONDAY, WEDNESDAY AND FRIDAY.
     Route: 048
     Dates: start: 20061102
  13. ASPIRIN [Concomitant]
     Dosage: DRUG REPORTED AS ^BABY ASPIRIN^.
     Route: 048
     Dates: start: 20060509
  14. TOPROL-XL [Concomitant]
     Route: 048
     Dates: start: 20060509
  15. VASOTEC [Concomitant]
     Route: 048
     Dates: start: 20070412

REACTIONS (7)
  - CYST [None]
  - HAEMATOMA [None]
  - INFARCTION [None]
  - INFECTION [None]
  - NEOPLASM [None]
  - RENAL MASS [None]
  - SQUAMOUS CELL CARCINOMA OF SKIN [None]
